FAERS Safety Report 6397455-2 (Version None)
Quarter: 2009Q4

REPORT INFORMATION
  Report Type: 
  Country: None (occurrence: None)
  Receive Date: 20091012
  Receipt Date: 20091006
  Transmission Date: 20100525
  Serious: Yes (Hospitalization)
  Sender: FDA-Public Use
  Company Number: US-B.I. PHARMACEUTICALS,INC./RIDGEFIELD-2009-BP-11632BP

PATIENT
  Sex: Female
  Weight: 67.6 kg

DRUGS (15)
  1. ATROVENT [Suspect]
     Indication: CHRONIC OBSTRUCTIVE PULMONARY DISEASE
     Dates: start: 20080313, end: 20080316
  2. SPIRIVA [Suspect]
     Dosage: 18 MCG
     Dates: start: 20050510
  3. CELECOXIB; IBUPROFEN/NAPROXEN;PLACEBO (CODE NOT BROKEN) [Suspect]
     Indication: OSTEOARTHRITIS
     Route: 048
     Dates: start: 20071121, end: 20080101
  4. CELECOXIB; IBUPROFEN/NAPROXEN;PLACEBO (CODE NOT BROKEN) [Suspect]
     Indication: RHEUMATOID ARTHRITIS
  5. AMINOPHYLLIN [Suspect]
     Route: 042
     Dates: start: 20080313, end: 20080316
  6. ALBUTEROL [Suspect]
     Dates: start: 20080313, end: 20080316
  7. ADVAIR DISKUS 100/50 [Suspect]
     Route: 055
     Dates: start: 20051209
  8. SYNTHROID [Concomitant]
     Dates: start: 20050105
  9. AVAPRO [Concomitant]
     Dates: start: 20071220
  10. ASPIRIN [Concomitant]
     Dates: start: 20080313
  11. ATIVAN [Concomitant]
     Dates: start: 20080313
  12. COMBIVENT [Concomitant]
     Dates: start: 20080313
  13. TYLENOL (CAPLET) [Concomitant]
     Dates: start: 20080201
  14. LEVAQUIN [Concomitant]
     Dates: start: 20080313, end: 20080323
  15. CARDIZEM CD [Concomitant]
     Dates: start: 20080313, end: 20080323

REACTIONS (3)
  - ATRIAL FIBRILLATION [None]
  - CHRONIC OBSTRUCTIVE PULMONARY DISEASE [None]
  - SINUS TACHYCARDIA [None]
